FAERS Safety Report 25520032 (Version 1)
Quarter: 2025Q3

REPORT INFORMATION
  Report Type: Spontaneous
  Country: US (occurrence: US)
  Receive Date: 20250704
  Receipt Date: 20250704
  Transmission Date: 20251021
  Serious: No
  Sender: SANOFI AVENTIS
  Company Number: US-SA-2025SA188467

PATIENT
  Age: 60 Year
  Sex: Female
  Weight: 60.3 kg

DRUGS (1)
  1. DUPIXENT [Suspect]
     Active Substance: DUPILUMAB
     Indication: Nasal polyps
     Dosage: 300 MG, QOW
     Route: 058

REACTIONS (3)
  - Injection site reaction [Unknown]
  - Accidental exposure to product [Unknown]
  - Exposure via skin contact [Unknown]

NARRATIVE: CASE EVENT DATE: 20250601
